FAERS Safety Report 24282782 (Version 1)
Quarter: 2024Q3

REPORT INFORMATION
  Report Type: Spontaneous
  Country: IL (occurrence: None)
  Receive Date: 20240902
  Receipt Date: 20240902
  Transmission Date: 20241016
  Serious: No
  Sender: Public
  Company Number: None

PATIENT
  Age: 68 Year
  Sex: Male
  Weight: 116 kg

DRUGS (12)
  1. OZEMPIC [Suspect]
     Active Substance: SEMAGLUTIDE
  2. BISOPROLOL FUMARATE [Concomitant]
     Active Substance: BISOPROLOL FUMARATE
  3. valsarten plus 160/12.5 [Concomitant]
  4. valsarten 80 [Concomitant]
  5. nexsium [Concomitant]
  6. statore [Concomitant]
  7. EZETIMIBE [Concomitant]
     Active Substance: EZETIMIBE
  8. VITAMIN C [Concomitant]
     Active Substance: ASCORBIC ACID
  9. VITAMIN D [Concomitant]
     Active Substance: VITAMIN D NOS
  10. DIETARY SUPPLEMENT\UBIDECARENONE [Concomitant]
     Active Substance: DIETARY SUPPLEMENT\UBIDECARENONE
  11. white thistle [Concomitant]
  12. ZINC [Concomitant]
     Active Substance: ZINC

REACTIONS (4)
  - Diarrhoea [None]
  - Therapy interrupted [None]
  - Weight decreased [None]
  - Weight increased [None]

NARRATIVE: CASE EVENT DATE: 20240310
